FAERS Safety Report 8916932 (Version 1)
Quarter: 2012Q4

REPORT INFORMATION
  Report Type: 
  Country: US (occurrence: US)
  Receive Date: 20121120
  Receipt Date: 20121120
  Transmission Date: 20130627
  Serious: Yes (Other)
  Sender: FDA-Public Use
  Company Number: US-009507513-1211USA004811

PATIENT
  Age: 70 Year
  Sex: Female
  Weight: 118.37 kg

DRUGS (17)
  1. DEXAMETHASONE [Suspect]
     Dosage: 20 mg, days 1-4
  2. REVLIMID [Suspect]
     Indication: MULTIPLE MYELOMA
     Dosage: 25 mg, qd
     Route: 048
     Dates: start: 20120511, end: 20120913
  3. ASPIRIN [Concomitant]
     Dosage: 325 mg, qd
     Route: 048
  4. ATENOLOL [Concomitant]
     Route: 048
  5. DETROL [Concomitant]
     Route: 048
  6. HYDROCHLOROTHIAZIDE [Concomitant]
     Route: 048
  7. MICARDIS [Concomitant]
     Dosage: UNK
  8. MOTRIN [Concomitant]
  9. DOCUSATE SODIUM [Concomitant]
  10. SYMBICORT [Concomitant]
     Route: 055
  11. ERGOCALCIFEROL [Concomitant]
     Dosage: 2 DF, qd
     Route: 048
  12. ZOCOR [Concomitant]
  13. ALBUTEROL [Concomitant]
     Route: 055
  14. CALCIUM (UNSPECIFIED) (+) VITAMIN D (UNSPECIFIED) [Concomitant]
     Route: 048
  15. IBUPROFEN [Concomitant]
     Route: 048
  16. LIPITOR [Concomitant]
     Dosage: 10 mg, qd
     Route: 048
  17. SIMVASTATIN [Concomitant]
     Dosage: 10 mg, qd
     Route: 048

REACTIONS (4)
  - Pneumonitis [Unknown]
  - Tremor [Recovered/Resolved]
  - Hyperhidrosis [Recovered/Resolved]
  - Constipation [Not Recovered/Not Resolved]
